FAERS Safety Report 7024520-9 (Version None)
Quarter: 2010Q4

REPORT INFORMATION
  Report Type: 
  Country: None (occurrence: None)
  Receive Date: 20101001
  Receipt Date: 20100927
  Transmission Date: 20110411
  Serious: Yes (Hospitalization)
  Sender: FDA-Public Use
  Company Number: B0658881A

PATIENT
  Sex: Male

DRUGS (6)
  1. LAMICTAL [Suspect]
     Indication: BIPOLAR DISORDER
     Route: 048
     Dates: start: 20100415, end: 20100518
  2. DEPAKENE [Suspect]
     Indication: BIPOLAR DISORDER
     Dosage: 800MG PER DAY
     Route: 048
  3. ARTANE [Concomitant]
     Indication: BIPOLAR DISORDER
     Dosage: 2MG PER DAY
     Route: 048
  4. LODOPIN [Concomitant]
     Indication: BIPOLAR DISORDER
     Dosage: 25MG PER DAY
     Route: 048
  5. LIMAS [Concomitant]
     Indication: BIPOLAR DISORDER
     Route: 048
  6. LENDORMIN [Concomitant]
     Indication: BIPOLAR DISORDER
     Dosage: .25MG PER DAY
     Route: 048

REACTIONS (5)
  - DRUG ERUPTION [None]
  - OROPHARYNGEAL PAIN [None]
  - PYREXIA [None]
  - STOMATITIS [None]
  - SWELLING FACE [None]
